FAERS Safety Report 9374897 (Version 1)
Quarter: 2013Q2

REPORT INFORMATION
  Report Type: Spontaneous
  Country: US (occurrence: US)
  Receive Date: 20130628
  Receipt Date: 20130628
  Transmission Date: 20140414
  Serious: No
  Sender: FDA-Public Use
  Company Number: US-009507513-1306USA009833

PATIENT
  Sex: Female

DRUGS (2)
  1. COPPERTONE WATER BABIES LOTION SPF-50 [Suspect]
     Indication: PRODUCT USED FOR UNKNOWN INDICATION
     Dosage: UNK, UNKNOWN
     Route: 061
  2. COPPERTONE WATER BABIES LOTION SPF-50 [Suspect]
     Indication: MEDICAL OBSERVATION

REACTIONS (1)
  - Drug label confusion [Unknown]
